FAERS Safety Report 9050640 (Version 2)
Quarter: 2014Q1

REPORT INFORMATION
  Report Type: Report from Study
  Country: US (occurrence: US)
  Receive Date: 20130205
  Receipt Date: 20140312
  Transmission Date: 20141002
  Serious: Yes (Hospitalization, Other)
  Sender: FDA-Public Use
  Company Number: US-ALEXION PHARMACEUTICALS INC.-A201300162

PATIENT
  Sex: 0

DRUGS (2)
  1. SOLIRIS [Suspect]
     Indication: PAROXYSMAL NOCTURNAL HAEMOGLOBINURIA
     Dosage: UNK
     Route: 042
     Dates: start: 20070522
  2. SOLIRIS [Suspect]
     Dosage: 900 MG
     Route: 042
     Dates: start: 20120202

REACTIONS (4)
  - Aplastic anaemia [Recovered/Resolved]
  - Packed red blood cell transfusion [Unknown]
  - Platelet transfusion [Unknown]
  - Reticulocyte count increased [Unknown]
